FAERS Safety Report 5092472-7 (Version None)
Quarter: 2006Q3

REPORT INFORMATION
  Report Type: 
  Country: None (occurrence: None)
  Receive Date: 20060822
  Receipt Date: 20060414
  Transmission Date: 20061208
  Serious: Yes (Other)
  Sender: FDA-Public Use
  Company Number: 200610029BBE

PATIENT
  Age: 43 Year
  Sex: Male

DRUGS (2)
  1. GAMUNEX [Suspect]
     Indication: MYELITIS TRANSVERSE
     Dosage: SEE IMAGE
     Route: 042
     Dates: start: 20030101
  2. GAMUNEX [Suspect]

REACTIONS (4)
  - BURNING SENSATION [None]
  - FATIGUE [None]
  - HYPERSENSITIVITY [None]
  - WEST NILE VIRAL INFECTION [None]
